FAERS Safety Report 16455764 (Version 1)
Quarter: 2019Q2

REPORT INFORMATION
  Report Type: Spontaneous
  Country: US (occurrence: US)
  Receive Date: 20190619
  Receipt Date: 20190619
  Transmission Date: 20190711
  Serious: Yes (Hospitalization, Other)
  Sender: FDA-Public Use
  Company Number: PHEH2019US025230

PATIENT
  Age: 44 Year
  Sex: Female
  Weight: 47 kg

DRUGS (2)
  1. PROMACTA [Suspect]
     Active Substance: ELTROMBOPAG OLAMINE
     Indication: IMMUNE THROMBOCYTOPENIC PURPURA
     Dosage: 25 MG, QD
     Route: 048
     Dates: start: 20190215
  2. PROMACTA [Suspect]
     Active Substance: ELTROMBOPAG OLAMINE
     Dosage: 50 MG, UNK
     Route: 048
     Dates: start: 20190218

REACTIONS (9)
  - Pyrexia [Unknown]
  - Urinary tract infection [Recovered/Resolved with Sequelae]
  - Dehydration [Unknown]
  - Nausea [Not Recovered/Not Resolved]
  - Urinary retention [Unknown]
  - Urinary tract infection [Recovered/Resolved with Sequelae]
  - Acute kidney injury [Unknown]
  - Agitation [Unknown]
  - Vomiting [Not Recovered/Not Resolved]

NARRATIVE: CASE EVENT DATE: 20190506
